FAERS Safety Report 6189949-X (Version None)
Quarter: 2009Q2

REPORT INFORMATION
  Report Type: 
  Country: None (occurrence: None)
  Receive Date: 20090514
  Receipt Date: 20090504
  Transmission Date: 20091009
  Serious: Yes (Other)
  Sender: FDA-Public Use
  Company Number: PHEH2009US01137

PATIENT
  Sex: Female
  Weight: 69.841 kg

DRUGS (7)
  1. ZOMETA [Suspect]
     Dosage: 4MG MONTHLY
     Dates: start: 20040601, end: 20060801
  2. AREDIA [Suspect]
  3. TUMS [Concomitant]
  4. FEMARA [Concomitant]
     Dosage: 2.5 MG, QD
  5. VESICARE [Concomitant]
  6. DOCUSATE SODIUM [Concomitant]
  7. LETROZOLE [Concomitant]

REACTIONS (22)
  - AMNESIA [None]
  - ANAL SPHINCTER ATONY [None]
  - ANORECTAL DISORDER [None]
  - ARTIFICIAL CROWN PROCEDURE [None]
  - BONE DISORDER [None]
  - DEAFNESS [None]
  - ENDOMETRIAL HYPERPLASIA [None]
  - FALL [None]
  - HAEMATOCHEZIA [None]
  - LOOSE TOOTH [None]
  - LUNG DISORDER [None]
  - ORAL MUCOSAL ERYTHEMA [None]
  - OSTEOMYELITIS [None]
  - OSTEONECROSIS [None]
  - PALATAL OEDEMA [None]
  - PRIMARY SEQUESTRUM [None]
  - PURULENT DISCHARGE [None]
  - RECTAL HAEMORRHAGE [None]
  - SOFT TISSUE INFLAMMATION [None]
  - TOOTH EXTRACTION [None]
  - TOOTH FRACTURE [None]
  - WEIGHT DECREASED [None]
